FAERS Safety Report 26174809 (Version 1)
Quarter: 2025Q4

REPORT INFORMATION
  Report Type: Spontaneous
  Country: CN (occurrence: None)
  Receive Date: 20251218
  Receipt Date: 20251218
  Transmission Date: 20260117
  Serious: Yes (Other)
  Sender: ORGANON
  Company Number: CN-ORGANON-O2512CHN001163

PATIENT
  Age: 53 Year
  Sex: Male

DRUGS (2)
  1. HYZAAR [Suspect]
     Active Substance: HYDROCHLOROTHIAZIDE\LOSARTAN POTASSIUM
     Dosage: FOR MANY YEARS
     Route: 061
  2. HYZAAR [Suspect]
     Active Substance: HYDROCHLOROTHIAZIDE\LOSARTAN POTASSIUM
     Dosage: TOOK SEVERAL BOXES
     Route: 061

REACTIONS (4)
  - Blood pressure increased [Unknown]
  - Therapeutic product effect decreased [Unknown]
  - Suspected counterfeit product [Unknown]
  - Counterfeit product administered [Unknown]
